FAERS Safety Report 15601540 (Version 1)
Quarter: 2018Q4

REPORT INFORMATION
  Report Type: Report from Study
  Country: BR (occurrence: BR)
  Receive Date: 20181109
  Receipt Date: 20181109
  Transmission Date: 20190205
  Serious: Yes (Death, Hospitalization)
  Sender: FDA-Public Use
  Company Number: BR-B.I. PHARMACEUTICALS,INC./RIDGEFIELD-2018-BI-031164

PATIENT
  Age: 78 Year
  Sex: Male
  Weight: 100 kg

DRUGS (2)
  1. OFEV [Suspect]
     Active Substance: NINTEDANIB
     Route: 048
     Dates: start: 201806
  2. OFEV [Suspect]
     Active Substance: NINTEDANIB
     Indication: IDIOPATHIC PULMONARY FIBROSIS
     Route: 048
     Dates: start: 201701, end: 201802

REACTIONS (15)
  - Vomiting [Recovered/Resolved]
  - Hypoxia [Unknown]
  - Condition aggravated [Unknown]
  - Cough [Not Recovered/Not Resolved]
  - Idiopathic pulmonary fibrosis [Unknown]
  - Dyspnoea [Unknown]
  - Pneumonia [Fatal]
  - Lung disorder [Fatal]
  - Fatigue [Not Recovered/Not Resolved]
  - Dyspnoea [Fatal]
  - Lung infection [Not Recovered/Not Resolved]
  - Diabetes mellitus inadequate control [Unknown]
  - Respiratory failure [Fatal]
  - Traumatic lung injury [Not Recovered/Not Resolved]
  - Cardiac disorder [Not Recovered/Not Resolved]

NARRATIVE: CASE EVENT DATE: 201804
